FAERS Safety Report 8479611-2 (Version None)
Quarter: 2012Q2

REPORT INFORMATION
  Report Type: 
  Country: None (occurrence: None)
  Receive Date: 20120629
  Receipt Date: 20120627
  Transmission Date: 20120825
  Serious: No
  Sender: FDA-Public Use
  Company Number: US-PFIZER INC-2012155288

PATIENT
  Sex: Female
  Weight: 72 kg

DRUGS (9)
  1. TOPIRAMATE [Concomitant]
     Indication: MIGRAINE
     Dosage: 50 MG, 2X/DAY
  2. MEDROXYPROGESTERONE [Concomitant]
     Indication: CONTRACEPTION
     Dosage: 10 MG, 1X/DAY
  3. LYRICA [Suspect]
     Indication: FIBROMYALGIA
     Dosage: 75 MG, 2X/DAY
     Route: 048
     Dates: start: 20120625
  4. CITALOPRAM [Concomitant]
     Indication: DEPRESSION
     Dosage: 10 MG, 1X/DAY
     Dates: start: 20120625
  5. ISOSORBIDE [Concomitant]
     Indication: CARDIAC DISORDER
     Dosage: 30 MG, 2X/DAY
  6. LEVOTHYROXINE [Concomitant]
     Indication: HYPOTHYROIDISM
     Dosage: 75 UG, UNK
  7. PLAVIX [Concomitant]
     Dosage: 75 MG, 1X/DAY
  8. LORAZEPAM [Concomitant]
     Indication: SLEEP DISORDER
     Dosage: 1 MG, 2X/DAY
  9. ASPIRIN [Concomitant]
     Dosage: 325 MG, UNK

REACTIONS (1)
  - FATIGUE [None]
